FAERS Safety Report 7734425-3 (Version None)
Quarter: 2011Q3

REPORT INFORMATION
  Report Type: 
  Country: None (occurrence: None)
  Receive Date: 20110907
  Receipt Date: 20110901
  Transmission Date: 20111222
  Serious: Yes (Life-Threatening, Hospitalization, Other)
  Sender: FDA-Public Use
  Company Number: JP-ABBOTT-11P-087-0848956-00

PATIENT
  Sex: Male
  Weight: 51 kg

DRUGS (8)
  1. ARIPIPRAZOLE [Interacting]
     Indication: SCHIZOPHRENIA
     Route: 048
     Dates: start: 20110318, end: 20110708
  2. ARIPIPRAZOLE [Interacting]
     Dates: start: 20110801, end: 20110804
  3. NITRAZEPAM [Concomitant]
     Indication: INSOMNIA
     Route: 048
     Dates: start: 20110318, end: 20110804
  4. CLARITHROMYCIN [Suspect]
     Indication: UPPER RESPIRATORY TRACT INFLAMMATION
     Route: 048
     Dates: start: 20110716, end: 20110720
  5. ZOLPIDEM TARTRATE [Concomitant]
     Indication: INSOMNIA
     Route: 048
     Dates: start: 20110407, end: 20110804
  6. PROMETHAZINE [Concomitant]
     Indication: PARKINSONISM
     Route: 048
     Dates: start: 20110407, end: 20110804
  7. CLARITHROMYCIN [Interacting]
     Indication: BRONCHITIS
  8. ARIPIPRAZOLE [Interacting]
     Dates: start: 20110709, end: 20110731

REACTIONS (10)
  - ASTHENIA [None]
  - ALTERED STATE OF CONSCIOUSNESS [None]
  - RENAL FAILURE ACUTE [None]
  - DRUG INTERACTION [None]
  - DYSPHAGIA [None]
  - RHABDOMYOLYSIS [None]
  - URINARY RETENTION [None]
  - BRADYKINESIA [None]
  - PYREXIA [None]
  - DRUG LEVEL INCREASED [None]
